FAERS Safety Report 8509795-9 (Version None)
Quarter: 2012Q3

REPORT INFORMATION
  Report Type: 
  Country: None (occurrence: None)
  Receive Date: 20120703
  Receipt Date: 20120619
  Transmission Date: 20120928
  Serious: Yes (Life-Threatening, Hospitalization)
  Sender: FDA-Public Use
  Company Number: IBUP20120003

PATIENT
  Age: 23 Year
  Sex: Female

DRUGS (3)
  1. ACETAMINOPHEN [Suspect]
     Indication: INFLUENZA LIKE ILLNESS
     Dosage: UNK
  2. IBUPROFEN [Suspect]
     Indication: INFLUENZA LIKE ILLNESS
     Dosage: UNK
  3. CLARITHROMYCIN [Suspect]
     Indication: INFLUENZA LIKE ILLNESS
     Dosage: UNK

REACTIONS (11)
  - HAEMOGLOBIN DECREASED [None]
  - INTERNATIONAL NORMALISED RATIO INCREASED [None]
  - DIALYSIS [None]
  - DERMATITIS EXFOLIATIVE [None]
  - RASH MACULAR [None]
  - ACUTE HEPATIC FAILURE [None]
  - RESPIRATORY FAILURE [None]
  - PETECHIAE [None]
  - MUCOUS MEMBRANE DISORDER [None]
  - ISCHAEMIA [None]
  - PURPURA [None]
